FAERS Safety Report 19881524 (Version 1)
Quarter: 2021Q3

REPORT INFORMATION
  Report Type: Spontaneous
  Country: US (occurrence: US)
  Receive Date: 20210924
  Receipt Date: 20210924
  Transmission Date: 20211014
  Serious: Yes (Other)
  Sender: FDA-Public Use
  Company Number: US-TEVA-2021-US-1956687

PATIENT
  Age: 79 Year
  Sex: Female
  Weight: 68.04 kg

DRUGS (25)
  1. NITROGLYCERIN. [Concomitant]
     Active Substance: NITROGLYCERIN
     Indication: ARTERIOSPASM CORONARY
     Dosage: 4 MG SUBLINGUAL RESCUE TABLETS AS NEEDED UP TO 5 TABLETS
     Route: 060
  2. QVAR REDIHALER [Suspect]
     Active Substance: BECLOMETHASONE DIPROPIONATE
     Indication: ASTHMA
     Dosage: 2 PUFFS IN THE MORNING AND 2 PUFFS IN THE EVENING
     Route: 065
     Dates: start: 2009
  3. SALMETEROL [Suspect]
     Active Substance: SALMETEROL
     Route: 065
  4. ALBUTEROL. [Concomitant]
     Active Substance: ALBUTEROL
     Indication: ASTHMA
     Route: 065
  5. LARGININE [Concomitant]
     Indication: CARDIAC DISORDER
     Route: 065
  6. DILTIAZEM CD12 [Concomitant]
     Indication: CARDIAC DISORDER
     Route: 065
  7. FLUTICASONE. [Concomitant]
     Active Substance: FLUTICASONE
     Indication: HYPERSENSITIVITY
     Route: 065
  8. MAGNESIUM GLUCONATE [Concomitant]
     Active Substance: MAGNESIUM GLUCONATE
     Indication: CARDIAC DISORDER
     Route: 065
  9. ROSUVASTATIN. [Concomitant]
     Active Substance: ROSUVASTATIN
     Dosage: DAILY
     Route: 065
  10. SUCRALFATE. [Concomitant]
     Active Substance: SUCRALFATE
     Dosage: 1 TABLET (2 TO 4 A DAY)
     Route: 065
  11. BETAMETHASONE. [Concomitant]
     Active Substance: BETAMETHASONE
     Indication: ECZEMA
     Route: 065
  12. IRBESARTAN. [Concomitant]
     Active Substance: IRBESARTAN
     Indication: BLOOD PRESSURE MEASUREMENT
     Route: 065
  13. THYROID TABLET [Concomitant]
     Route: 065
  14. QVAR REDIHALER [Suspect]
     Active Substance: BECLOMETHASONE DIPROPIONATE
     Indication: SLEEP APNOEA SYNDROME
  15. WIXELA INHUB [Suspect]
     Active Substance: FLUTICASONE PROPIONATE\SALMETEROL XINAFOATE
     Route: 065
     Dates: end: 20210910
  16. COENZYME Q10 [Concomitant]
     Active Substance: DIETARY SUPPLEMENT\UBIDECARENONE
     Route: 065
  17. VITAMIN D3 [Concomitant]
     Active Substance: CHOLECALCIFEROL
     Route: 065
  18. DICLOFENAC GEL [Concomitant]
     Active Substance: DICLOFENAC
     Indication: ARTHRITIS
     Dosage: PRN SPARINGLY
     Route: 065
  19. NYQQUIL [Concomitant]
     Indication: COMMUNITY ACQUIRED INFECTION
     Route: 065
  20. QVAR [Suspect]
     Active Substance: BECLOMETHASONE DIPROPIONATE
     Route: 065
     Dates: start: 20210914
  21. ACETAMINOPHEN. [Concomitant]
     Active Substance: ACETAMINOPHEN
     Indication: ARTHRITIS
     Route: 065
  22. ASPIRIN. [Concomitant]
     Active Substance: ASPIRIN
     Indication: CARDIAC DISORDER
     Route: 065
  23. FAMOTIDINE. [Concomitant]
     Active Substance: FAMOTIDINE
     Indication: DRUG HYPERSENSITIVITY
     Route: 065
  24. TRANSDERMAL NITROGLYCERIN PATCH [Concomitant]
     Dosage: 6/10 MG PER HOUR FOR 12 HOURS
     Route: 065
  25. OXYGEN. [Concomitant]
     Active Substance: OXYGEN
     Dosage: 2L/MINUTE
     Route: 065

REACTIONS (4)
  - Dyspnoea [Unknown]
  - Urinary incontinence [Not Recovered/Not Resolved]
  - Product use in unapproved indication [Unknown]
  - Acute kidney injury [Unknown]
